FAERS Safety Report 4578125-X (Version None)
Quarter: 2005Q1

REPORT INFORMATION
  Report Type: 
  Country: None (occurrence: None)
  Receive Date: 20050209
  Receipt Date: 20050125
  Transmission Date: 20050727
  Serious: Yes (Hospitalization)
  Sender: FDA-Public Use
  Company Number: 212007

PATIENT
  Age: 56 Year
  Sex: Male

DRUGS (26)
  1. MABTHERA (RITUXIMAB) CONC FOR SOLUTION FOR INFUSION [Suspect]
     Indication: LYMPHOMA
     Dosage: INTRAVENOUS
     Route: 042
     Dates: start: 20040701, end: 20040705
  2. MABTHERA (RITUXIMAB) CONC FOR SOLUTION FOR INFUSION [Suspect]
     Indication: LYMPHOMA
     Dosage: INTRAVENOUS
     Route: 042
     Dates: start: 20040920, end: 20040924
  3. MABTHERA (RITUXIMAB) CONC FOR SOLUTION FOR INFUSION [Suspect]
     Indication: LYMPHOMA
     Dosage: INTRAVENOUS
     Route: 042
     Dates: start: 20041021, end: 20041021
  4. MABTHERA (RITUXIMAB) CONC FOR SOLUTION FOR INFUSION [Suspect]
     Indication: LYMPHOMA
     Dosage: INTRAVENOUS
     Route: 042
     Dates: start: 20040601
  5. METHOTREXATE [Suspect]
     Indication: LYMPHOMA
     Dates: start: 20040701, end: 20040705
  6. METHOTREXATE [Suspect]
     Indication: LYMPHOMA
     Dates: start: 20040920, end: 20040924
  7. METHOTREXATE [Suspect]
     Indication: LYMPHOMA
     Dates: start: 20041021, end: 20041021
  8. METHOTREXATE [Suspect]
     Indication: LYMPHOMA
     Dates: start: 20040601
  9. ONDANSETRON HYDROCHLORIDE [Suspect]
     Dates: start: 20040920, end: 20040924
  10. AUGMENTIN '250' [Suspect]
     Dosage: 3 G QD ORAL
     Route: 048
     Dates: start: 20041023, end: 20041024
  11. CYTARABINE [Suspect]
     Dates: start: 20040920, end: 20040924
  12. ACIDE FOLINIQUE(LEUCOVORIN CALCIUM) [Suspect]
     Dates: start: 20040920, end: 20040924
  13. CYCLOPHOSPHAMIDE [Concomitant]
  14. EPIRUBICIN [Concomitant]
  15. VINDESINE (VINDESINE) [Concomitant]
  16. PREDNISONE [Concomitant]
  17. INEXIUM (ESOMEPRAZOLE MAGNESIUM) [Concomitant]
  18. IMOVANE (ZOPICLONE) [Concomitant]
  19. SPASFON (PHLOROGLUCINOL, TRIMETHYLPHLORGLUCINOL) [Concomitant]
  20. GAVISCON (GASTROINTESTINAL DRUG NOS) [Concomitant]
  21. DI-ANTALVIC (ACETAMINOPHEN, PROPOXYPHENE HYDROCHLORIDE) [Concomitant]
  22. XANAX [Concomitant]
  23. AUGMENTIN (AMOXICILLIN, CLAVULANATE POTASSIUM) [Concomitant]
  24. OFLOXACIN [Concomitant]
  25. PYOSTACINE (PRISTINAMYCIN) [Concomitant]
  26. SOLU-MEDROL [Concomitant]

REACTIONS (10)
  - EOSINOPHILIA [None]
  - HEPATITIS B [None]
  - LARYNGEAL OEDEMA [None]
  - NEUTROPENIA [None]
  - PRURITUS [None]
  - STAPHYLOCOCCAL INFECTION [None]
  - TOXIC SKIN ERUPTION [None]
  - VASCULITIS [None]
  - VIRAL INFECTION [None]
  - WEIGHT INCREASED [None]
